FAERS Safety Report 5470827-6 (Version None)
Quarter: 2007Q3

REPORT INFORMATION
  Report Type: 
  Country: None (occurrence: None)
  Receive Date: 20070928
  Receipt Date: 20070919
  Transmission Date: 20080115
  Serious: Yes (Life-Threatening, Hospitalization)
  Sender: FDA-Public Use
  Company Number: GB-TYCO HEALTHCARE/MALLINCKRODT-T200701138

PATIENT

DRUGS (1)
  1. OPTIRAY 300 [Suspect]
     Indication: COMPUTERISED TOMOGRAM
     Dosage: 100 ML, SINGLE
     Route: 042
     Dates: start: 20070918, end: 20070918

REACTIONS (6)
  - DYSPNOEA [None]
  - EYE PAIN [None]
  - EYE PRURITUS [None]
  - FACE OEDEMA [None]
  - MALAISE [None]
  - NAUSEA [None]
